FAERS Safety Report 4735244-2 (Version None)
Quarter: 2005Q3

REPORT INFORMATION
  Report Type: 
  Country: None (occurrence: None)
  Receive Date: 20050802
  Receipt Date: 20050718
  Transmission Date: 20060218
  Serious: Yes (Hospitalization)
  Sender: FDA-Public Use
  Company Number: 2005-DE-02813GD

PATIENT
  Age: 74 Year
  Sex: Female

DRUGS (5)
  1. DIGOXIN [Suspect]
  2. SIMVASTATIN [Suspect]
     Dosage: 80 MG
  3. GEMFIBROZIL [Suspect]
     Dosage: 1200 MG, TWICE DAILY
  4. VERAPAMIL [Suspect]
  5. WARFARIN SODIUM [Suspect]

REACTIONS (4)
  - ALANINE AMINOTRANSFERASE INCREASED [None]
  - BLOOD CREATINE PHOSPHOKINASE INCREASED [None]
  - DRUG INTERACTION [None]
  - MYOSITIS [None]
